FAERS Safety Report 8061732-X (Version None)
Quarter: 2012Q1

REPORT INFORMATION
  Report Type: 
  Country: None (occurrence: None)
  Receive Date: 20120123
  Receipt Date: 20120113
  Transmission Date: 20120608
  Serious: Yes (Hospitalization)
  Sender: FDA-Public Use
  Company Number: US-BIOGENIDEC-2012BI002193

PATIENT
  Age: 44 Year
  Sex: Female

DRUGS (2)
  1. AVONEX [Suspect]
     Indication: MULTIPLE SCLEROSIS
     Route: 030
     Dates: start: 20081212
  2. AVONEX [Suspect]
     Route: 030
     Dates: start: 20101022

REACTIONS (3)
  - CONVULSION [None]
  - VISION BLURRED [None]
  - CEREBROVASCULAR ACCIDENT [None]
